FAERS Safety Report 4646822-3 (Version None)
Quarter: 2005Q2

REPORT INFORMATION
  Report Type: 
  Country: None (occurrence: None)
  Receive Date: 20050331
  Receipt Date: 20050225
  Transmission Date: 20051028
  Serious: No
  Sender: FDA-Public Use
  Company Number: 05P-163-0292055-00

PATIENT
  Age: 64 Year
  Sex: Female

DRUGS (9)
  1. HUMIRA [Suspect]
     Indication: ANKYLOSING SPONDYLITIS
     Dosage: 40 MG, 1 IN 2 WK, SUBCUTANEOUS
     Route: 058
     Dates: start: 20050221
  2. POTASSIUM CHLORIDE [Concomitant]
  3. FUROSEMIDE [Concomitant]
  4. FOLIC ACID [Concomitant]
  5. METHOTREXATE [Concomitant]
  6. MULTI-VITAMINS [Concomitant]
  7. CALCIUM GLUCONATE [Concomitant]
  8. VITAMIN B COMPLEX CAP [Concomitant]
  9. ASCORBIC ACID [Concomitant]

REACTIONS (3)
  - HEADACHE [None]
  - LACRIMATION INCREASED [None]
  - PAROSMIA [None]
